FAERS Safety Report 7456346-6 (Version None)
Quarter: 2011Q2

REPORT INFORMATION
  Report Type: 
  Country: None (occurrence: None)
  Receive Date: 20110503
  Receipt Date: 20110418
  Transmission Date: 20111010
  Serious: Yes (Hospitalization, Other)
  Sender: FDA-Public Use
  Company Number: US-BAYER-2010-002097

PATIENT
  Age: 49 Year
  Sex: Female
  Weight: 65.76 kg

DRUGS (12)
  1. FISH OIL [Concomitant]
     Indication: SUPPLEMENTATION THERAPY
     Dosage: UNK
     Route: 048
     Dates: start: 19990101
  2. BETAMETHASONE DIPROPIONATE [Concomitant]
     Route: 061
  3. YAZ [Suspect]
     Indication: MENOPAUSAL SYMPTOMS
  4. IRON SUPPLEMENT [Concomitant]
     Indication: ANAEMIA PROPHYLAXIS
     Dosage: UNK
     Route: 048
     Dates: start: 19800101
  5. MAGNESIUM [Concomitant]
     Indication: PALPITATIONS
     Dosage: UNK
     Dates: start: 20050101
  6. CALCIUM [Concomitant]
     Indication: OSTEOPOROSIS PROPHYLAXIS
     Dosage: UNK
     Route: 048
     Dates: start: 20050101
  7. ASPIRIN [Concomitant]
     Dosage: UNK
     Dates: start: 20070801
  8. YAZ [Suspect]
     Indication: CONTRACEPTION
     Dosage: UNK UNK, QD
     Route: 048
     Dates: start: 20040501, end: 20071201
  9. YASMIN [Suspect]
     Indication: CONTRACEPTION
     Dosage: UNK UNK, QD
     Route: 048
     Dates: start: 20040501, end: 20071201
  10. TOPROL-XL [Concomitant]
     Indication: PALPITATIONS
  11. YASMIN [Suspect]
     Indication: MENOPAUSAL SYMPTOMS
  12. MOTRIN [Concomitant]
     Indication: PHLEBITIS SUPERFICIAL
     Dosage: UNK
     Dates: start: 20071214

REACTIONS (3)
  - DEEP VEIN THROMBOSIS [None]
  - PULMONARY EMBOLISM [None]
  - THROMBOSIS [None]
